FAERS Safety Report 6135391-7 (Version None)
Quarter: 2009Q1

REPORT INFORMATION
  Report Type: 
  Country: None (occurrence: None)
  Receive Date: 20090327
  Receipt Date: 20090316
  Transmission Date: 20090719
  Serious: Yes (Hospitalization, Other)
  Sender: FDA-Public Use
  Company Number: NL-ELI_LILLY_AND_COMPANY-NL200903004691

PATIENT
  Sex: Female
  Weight: 62 kg

DRUGS (1)
  1. TERIPARATIDE [Suspect]
     Dates: end: 20070101

REACTIONS (4)
  - FALL [None]
  - HEPATIC STEATOSIS [None]
  - OSTEOPOROTIC FRACTURE [None]
  - RIB FRACTURE [None]
